FAERS Safety Report 7779355-6 (Version None)
Quarter: 2011Q3

REPORT INFORMATION
  Report Type: 
  Country: None (occurrence: None)
  Receive Date: 20110926
  Receipt Date: 20110910
  Transmission Date: 20111222
  Serious: Yes (Other)
  Sender: FDA-Public Use
  Company Number: PHHY2010JP58504

PATIENT
  Age: 53 Year
  Sex: Female

DRUGS (2)
  1. CORTICOSTEROIDS [Concomitant]
     Indication: MYASTHENIA GRAVIS
     Dosage: 5 MG/ DAY
     Dates: start: 20050501
  2. CYCLOSPORINE [Suspect]
     Indication: MYASTHENIA GRAVIS
     Dosage: 100 MG/ DAY

REACTIONS (7)
  - GINGIVAL ERYTHEMA [None]
  - GINGIVAL HYPERPLASIA [None]
  - BONE LOSS [None]
  - GINGIVAL SWELLING [None]
  - PERIODONTITIS [None]
  - TOOTH DISORDER [None]
  - GINGIVAL RECESSION [None]
